FAERS Safety Report 7041023-6 (Version None)
Quarter: 2010Q4

REPORT INFORMATION
  Report Type: 
  Country: None (occurrence: None)
  Receive Date: 20101008
  Receipt Date: 20100927
  Transmission Date: 20110411
  Serious: Yes (Other)
  Sender: FDA-Public Use
  Company Number: 2010SP051628

PATIENT
  Age: 41 Year
  Sex: Female
  Weight: 72 kg

DRUGS (2)
  1. CERAZETTE (DESOGESTREL /00754001/) [Suspect]
     Indication: CONTRACEPTION
     Dosage: UNK; PO
     Route: 048
     Dates: start: 20100517, end: 20100921
  2. SYNTHROID [Concomitant]

REACTIONS (2)
  - MENSTRUATION IRREGULAR [None]
  - OVARIAN CYST [None]
